FAERS Safety Report 9000954 (Version 1)
Quarter: 2013Q1

REPORT INFORMATION
  Report Type: Spontaneous
  Country: US (occurrence: None)
  Receive Date: 20130103
  Receipt Date: 20130103
  Transmission Date: 20140127
  Serious: Yes (Life-Threatening)
  Sender: FDA-Public Use
  Company Number: None

PATIENT
  Age: 73 Year
  Sex: Male
  Weight: 86.7 kg

DRUGS (2)
  1. ALLOPURINOL 100 MG [Suspect]
     Indication: GOUT
     Route: 048
     Dates: start: 20120530, end: 20120620
  2. ALLOPURINOL [Suspect]
     Route: 048
     Dates: start: 20120712, end: 20121127

REACTIONS (8)
  - Rash [None]
  - Fluid overload [None]
  - Dyspnoea exertional [None]
  - Fatigue [None]
  - Oedema peripheral [None]
  - Localised oedema [None]
  - Ventricular tachycardia [None]
  - Drug reaction with eosinophilia and systemic symptoms [None]
